FAERS Safety Report 8186966 (Version 2)
Quarter: 2013Q2

REPORT INFORMATION
  Report Type: Spontaneous
  Country: US (occurrence: US)
  Receive Date: 20111018
  Receipt Date: 20130605
  Transmission Date: 20140414
  Serious: No
  Sender: FDA-Public Use
  Company Number: US-ASTRAZENECA-2011SE07839

PATIENT
  Age: 63 Year
  Sex: Female

DRUGS (3)
  1. SYMBICORT PMDI [Suspect]
     Indication: ASTHMA
     Dosage: 320 MCG BID
     Route: 055
  2. SYMBICORT PMDI [Suspect]
     Indication: CHRONIC OBSTRUCTIVE PULMONARY DISEASE
     Dosage: 320 MCG BID
     Route: 055
  3. VENTOLIN [Concomitant]

REACTIONS (5)
  - Asthma [Unknown]
  - Wheezing [Unknown]
  - Pulmonary congestion [Unknown]
  - Dyspnoea [Unknown]
  - Drug dose omission [Unknown]
